FAERS Safety Report 25054863 (Version 1)
Quarter: 2025Q1

REPORT INFORMATION
  Report Type: Report from Study
  Country: US (occurrence: US)
  Receive Date: 20250308
  Receipt Date: 20250308
  Transmission Date: 20250409
  Serious: Yes (Death)
  Sender: ABBVIE
  Company Number: US-ABBVIE-6168382

PATIENT
  Age: 74 Year
  Sex: Female

DRUGS (1)
  1. SYNTHROID [Suspect]
     Active Substance: LEVOTHYROXINE SODIUM
     Indication: Product used for unknown indication
     Dosage: 100 MCG/ TAKE 1 TABLET DAILY
     Route: 048

REACTIONS (1)
  - Encephalitis [Fatal]

NARRATIVE: CASE EVENT DATE: 20250225
